FAERS Safety Report 8483686 (Version 3)
Quarter: 2012Q4

REPORT INFORMATION
  Report Type: 
  Country: US (occurrence: US)
  Receive Date: 20120329
  Receipt Date: 20121231
  Transmission Date: 20130627
  Serious: Yes (Hospitalization, Other)
  Sender: FDA-Public Use
  Company Number: US-ELI_LILLY_AND_COMPANY-US201202001207

PATIENT
  Age: 79 Year
  Sex: Female

DRUGS (17)
  1. FORTEO [Suspect]
     Indication: OSTEOPOROSIS
     Dosage: 20 ug, qd
     Route: 065
     Dates: start: 201201
  2. FORTEO [Suspect]
     Dosage: 20 ug, qd
     Route: 065
     Dates: end: 20120226
  3. FORTEO [Suspect]
     Dosage: 20 ug, qd
  4. FORTEO [Suspect]
     Dosage: 20 ug, qd
     Route: 065
  5. FORTEO [Suspect]
     Dosage: 20 ug, qd
     Route: 065
     Dates: start: 20120420
  6. FORTEO [Suspect]
     Dosage: 20 ug, qd
  7. FORTEO [Suspect]
     Dosage: 20 ug, qd
  8. FORTEO [Suspect]
     Dosage: 20 ug, qd
  9. FORTEO [Suspect]
     Dosage: 20 ug, qd
     Route: 065
     Dates: start: 20120601
  10. FORTEO [Suspect]
     Dosage: 20 ug, qd
  11. LEVOXYL [Concomitant]
  12. HYDROCORTISONE [Concomitant]
  13. FISH OIL [Concomitant]
  14. CENTRUM SILVER [Concomitant]
  15. TOPROL [Concomitant]
  16. BABY ASPIRIN [Concomitant]
  17. CITRUCEL [Concomitant]

REACTIONS (16)
  - Fall [Unknown]
  - Pelvic fracture [Unknown]
  - Hip fracture [Unknown]
  - Hospitalisation [Recovered/Resolved]
  - Fall [Unknown]
  - Pain in extremity [Unknown]
  - Haemorrhage [Unknown]
  - Injury associated with device [Unknown]
  - Upper limb fracture [Unknown]
  - Injection site bruising [Not Recovered/Not Resolved]
  - Throat irritation [Unknown]
  - Anosmia [Unknown]
  - Injury associated with device [Unknown]
  - Traumatic haemorrhage [Unknown]
  - Ageusia [Unknown]
  - Hypoacusis [Not Recovered/Not Resolved]
